FAERS Safety Report 21573032 (Version 2)
Quarter: 2022Q4

REPORT INFORMATION
  Report Type: Spontaneous
  Country: CA (occurrence: CA)
  Receive Date: 20221109
  Receipt Date: 20221206
  Transmission Date: 20230113
  Serious: Yes (Other)
  Sender: FDA-Public Use
  Company Number: CA-PFIZER INC-202101504393

PATIENT
  Age: 39 Year
  Sex: Female
  Weight: 56 kg

DRUGS (4)
  1. XELJANZ [Suspect]
     Active Substance: TOFACITINIB CITRATE
     Indication: Colitis ulcerative
     Dosage: 10 MG, 2X/DAY FOR 8 WEEKS INDUCTION
     Route: 048
     Dates: start: 20211002
  2. URSODIOL [Concomitant]
     Active Substance: URSODIOL
     Dosage: 1 DF
     Route: 065
  3. PREDNISONE [Concomitant]
     Active Substance: PREDNISONE
     Dosage: 40 MG (DECREASING DOSE)
     Route: 065
  4. SYNTHROID [Concomitant]
     Active Substance: LEVOTHYROXINE SODIUM
     Dosage: 1 DF
     Route: 065

REACTIONS (4)
  - Precancerous condition [Not Recovered/Not Resolved]
  - Intestinal resection [Not Recovered/Not Resolved]
  - Therapeutic product effect decreased [Unknown]
  - COVID-19 [Unknown]
